FAERS Safety Report 7631197-8 (Version None)
Quarter: 2011Q3

REPORT INFORMATION
  Report Type: 
  Country: None (occurrence: None)
  Receive Date: 20110715
  Receipt Date: 20110706
  Transmission Date: 20111222
  Serious: Yes (Life-Threatening, Hospitalization, Other)
  Sender: FDA-Public Use
  Company Number: 2010AC000047

PATIENT
  Age: 41 Year
  Sex: Male
  Weight: 183.2532 kg

DRUGS (75)
  1. DIGOXIN [Suspect]
     Dosage: 0.25 MG;QD;PO
     Route: 048
     Dates: start: 20080121, end: 20080124
  2. ZOCOR [Concomitant]
  3. ACCUPRIL [Concomitant]
  4. FLEXERIL [Concomitant]
  5. TESSALON [Concomitant]
  6. REGLAN [Concomitant]
  7. AMOXICILLIN [Concomitant]
  8. LUNESTA [Concomitant]
  9. MUCINEX [Concomitant]
  10. DICLOXACILLIN [Concomitant]
  11. TORADOL [Concomitant]
  12. DARVOCET [Concomitant]
  13. NITROGLYCERIN [Concomitant]
  14. CIPROFLOXACIN HCL [Concomitant]
  15. AMBIEN [Concomitant]
  16. XOPENEX [Concomitant]
  17. MAGNESIUM [Concomitant]
  18. NORFLEX [Concomitant]
  19. KLOR-CON [Concomitant]
  20. VYTORIN [Concomitant]
  21. ALDACTONE [Concomitant]
  22. OXYCODONE HCL [Concomitant]
  23. NAPROXEN (ALEVE) [Concomitant]
  24. MINITRAN PATCH [Concomitant]
  25. PROMETHAZINE [Concomitant]
  26. ROBITUSSIN AC [Concomitant]
  27. LIDIDERM PATCH [Concomitant]
  28. ISORDIL [Concomitant]
  29. SEROQUEL [Concomitant]
  30. MYCOLOG [Concomitant]
  31. ZOFRAN [Concomitant]
  32. DILAUDID [Concomitant]
  33. ROCEPHIN [Concomitant]
  34. LISINOPRIL [Concomitant]
  35. LOPRESSOR [Concomitant]
  36. IMDUR [Concomitant]
  37. XYTRIN [Concomitant]
  38. HYDRALAZINE HCL [Concomitant]
  39. ZAROXOLYN [Concomitant]
  40. DEMEROL [Concomitant]
  41. FIORINAL [Concomitant]
  42. PREVACID [Concomitant]
  43. FLAGYL [Concomitant]
  44. PEPCID [Concomitant]
  45. ADVAIR DISKUS 100/50 [Concomitant]
  46. ULTRAM [Concomitant]
  47. LEXAPRO [Concomitant]
  48. BENECAR [Concomitant]
  49. IBUPROFEN [Concomitant]
  50. TRAZODONE HCL [Concomitant]
  51. ZANAFLEX [Concomitant]
  52. ZOLOFT [Concomitant]
  53. DIGOXIN [Suspect]
     Dosage: 0.25 MG;QD;PO
     Route: 048
     Dates: start: 20041102, end: 20041206
  54. DIGOXIN [Suspect]
     Dosage: 0.125 MG;QD;PO
     Route: 048
     Dates: start: 20080125, end: 20080401
  55. DIGOXIN [Suspect]
     Dosage: 0.125 MG;QD;PO
     Route: 048
     Dates: start: 20090201
  56. METOPROLOL TARTRATE [Concomitant]
  57. VASOTEC [Concomitant]
  58. LASIX [Concomitant]
  59. ASPIRIN [Concomitant]
  60. LORTAB [Concomitant]
  61. KLONOPIN [Concomitant]
  62. MS CONTIN [Concomitant]
  63. PERCOCET [Concomitant]
  64. PREDNISONE [Concomitant]
  65. SPIRIVA [Concomitant]
  66. GLUCOSAMINE [Concomitant]
  67. DIGOXIN [Suspect]
     Dosage: PO
     Route: 048
     Dates: start: 20030601, end: 20041101
  68. ENALAPRIL MALEATE [Concomitant]
  69. COLACE [Concomitant]
  70. CELEBREX [Concomitant]
  71. SKELAXIN [Concomitant]
  72. TRAZODONE HCL [Concomitant]
  73. COREG [Concomitant]
  74. HYDROCODINE [Concomitant]
  75. LEVAQUIN [Concomitant]

REACTIONS (81)
  - SLEEP APNOEA SYNDROME [None]
  - HYPERTENSIVE EMERGENCY [None]
  - ANXIETY [None]
  - NON-CARDIAC CHEST PAIN [None]
  - FLUID OVERLOAD [None]
  - LEFT VENTRICULAR DYSFUNCTION [None]
  - GENITAL BURNING SENSATION [None]
  - CHEST DISCOMFORT [None]
  - HEADACHE [None]
  - HYPERHIDROSIS [None]
  - JOINT INJURY [None]
  - MUSCLE SPASMS [None]
  - MULTIPLE INJURIES [None]
  - BALANCE DISORDER [None]
  - ELECTROCARDIOGRAM T WAVE AMPLITUDE DECREASED [None]
  - WEIGHT INCREASED [None]
  - ELECTROCARDIOGRAM POOR R-WAVE PROGRESSION [None]
  - CELLULITIS OF MALE EXTERNAL GENITAL ORGAN [None]
  - DYSPNOEA [None]
  - TREATMENT NONCOMPLIANCE [None]
  - EMOTIONAL DISTRESS [None]
  - CARDIOMEGALY [None]
  - BURSITIS [None]
  - RASH PRURITIC [None]
  - BALANITIS CANDIDA [None]
  - ABDOMINAL PAIN UPPER [None]
  - GASTROINTESTINAL DISORDER [None]
  - PAIN [None]
  - HYDROCELE [None]
  - VENTRICULAR EXTRASYSTOLES [None]
  - FALL [None]
  - OXYGEN SATURATION DECREASED [None]
  - HYPOAESTHESIA [None]
  - PARAESTHESIA [None]
  - SCROTAL ABSCESS [None]
  - SPUTUM DISCOLOURED [None]
  - VOMITING [None]
  - CREPITATIONS [None]
  - TRANSIENT ISCHAEMIC ATTACK [None]
  - CAROTID ARTERY DISEASE [None]
  - BRONCHITIS [None]
  - CONDITION AGGRAVATED [None]
  - ARRHYTHMIA [None]
  - DIZZINESS POSTURAL [None]
  - LEFT VENTRICULAR HYPERTROPHY [None]
  - INSOMNIA [None]
  - ELECTROCARDIOGRAM T WAVE ABNORMAL [None]
  - SKIN LESION [None]
  - HAEMOPTYSIS [None]
  - DYSURIA [None]
  - ORTHOSTATIC HYPOTENSION [None]
  - MUSCULOSKELETAL PAIN [None]
  - GRAVITATIONAL OEDEMA [None]
  - NAUSEA [None]
  - TESTICULAR APPENDAGE TORSION [None]
  - BACK PAIN [None]
  - SOFT TISSUE INJURY [None]
  - FATIGUE [None]
  - CARDIAC FAILURE CONGESTIVE [None]
  - ISCHAEMIC CARDIOMYOPATHY [None]
  - SCROTAL PAIN [None]
  - RENAL FAILURE ACUTE [None]
  - NEPHROLITHIASIS [None]
  - CHRONIC OBSTRUCTIVE PULMONARY DISEASE [None]
  - HYPERGLYCAEMIA [None]
  - SKIN ULCER [None]
  - FLANK PAIN [None]
  - MUSCULOSKELETAL CHEST PAIN [None]
  - PRODUCTIVE COUGH [None]
  - DIARRHOEA [None]
  - WHEEZING [None]
  - GASTROENTERITIS [None]
  - ASTHENIA [None]
  - SINUS HEADACHE [None]
  - PRESYNCOPE [None]
  - SYNCOPE [None]
  - EJECTION FRACTION DECREASED [None]
  - OSTEOARTHRITIS [None]
  - PULMONARY OEDEMA [None]
  - ROAD TRAFFIC ACCIDENT [None]
  - HAEMATURIA [None]
